FAERS Safety Report 7828854-7 (Version None)
Quarter: 2011Q4

REPORT INFORMATION
  Report Type: 
  Country: None (occurrence: None)
  Receive Date: 20111020
  Receipt Date: 20111014
  Transmission Date: 20120403
  Serious: Yes (Other)
  Sender: FDA-Public Use
  Company Number: CHPA2011JP14272

PATIENT
  Sex: Male

DRUGS (3)
  1. GASMOTIN [Suspect]
     Dosage: UNK, UNK
     Route: 048
  2. MAGMITT KENEI [Suspect]
     Dosage: UNK, UNK
     Route: 048
  3. PURSENNID [Suspect]
     Dosage: UNK, UNK
     Route: 048

REACTIONS (2)
  - INTESTINAL OBSTRUCTION [None]
  - STOMATITIS [None]
